FAERS Safety Report 7543327-7 (Version None)
Quarter: 2011Q2

REPORT INFORMATION
  Report Type: 
  Country: None (occurrence: None)
  Receive Date: 20110613
  Receipt Date: 20110608
  Transmission Date: 20111010
  Serious: No
  Sender: FDA-Public Use
  Company Number: US-TEVA-285405USA

PATIENT
  Sex: Female

DRUGS (3)
  1. ONE A DAY GUMMIE [Concomitant]
     Indication: MEDICAL DIET
  2. PLAN B ONE-STEP [Suspect]
     Indication: POST COITAL CONTRACEPTION
     Dosage: 1.5 MILLIGRAM;
     Route: 048
     Dates: start: 20110509, end: 20110509
  3. ONE A DAY GUMMIE [Concomitant]
     Indication: VITAMIN SUPPLEMENTATION
     Route: 048

REACTIONS (3)
  - MENSTRUATION IRREGULAR [None]
  - ABDOMINAL PAIN [None]
  - MENSTRUATION DELAYED [None]
